FAERS Safety Report 4471121-2 (Version None)
Quarter: 2004Q4

REPORT INFORMATION
  Report Type: 
  Country: None (occurrence: None)
  Receive Date: 20041008
  Receipt Date: 20041005
  Transmission Date: 20050328
  Serious: Yes (Other)
  Sender: FDA-Public Use
  Company Number: 002874

PATIENT
  Sex: Female

DRUGS (6)
  1. MEDROXYPROGESTERONE ACETATE [Suspect]
     Dosage: ORAL
     Route: 048
  2. PROVERA [Suspect]
     Dosage: ORAL
     Route: 048
  3. COMBIPATCH [Suspect]
     Dosage: TRANSDERMAL
     Route: 062
  4. ESTRATEST [Suspect]
     Dosage: ORAL
     Route: 048
  5. PREMARIN [Suspect]
     Dosage: ORAL
     Route: 048
  6. MEDROXYPROGESTERONE ACETATE [Suspect]
     Dosage: ORAL
     Route: 048

REACTIONS (1)
  - BREAST CANCER IN SITU [None]
